FAERS Safety Report 6702844-X (Version None)
Quarter: 2010Q2

REPORT INFORMATION
  Report Type: 
  Country: None (occurrence: None)
  Receive Date: 20100429
  Receipt Date: 20100419
  Transmission Date: 20101027
  Serious: Yes (Other)
  Sender: FDA-Public Use
  Company Number: GB-VALEANT-2010VX000466

PATIENT
  Age: 65 Year
  Sex: Female

DRUGS (8)
  1. MESTINON [Suspect]
     Indication: MYASTHENIA GRAVIS
     Route: 048
  2. AZATHIOPRINE [Concomitant]
     Route: 065
  3. LANSOPRAZOLE [Concomitant]
     Route: 065
  4. LOSARTAN POTASSIUM [Concomitant]
     Route: 065
  5. ASPIRIN [Concomitant]
     Route: 065
  6. ATENOLOL [Concomitant]
     Route: 065
  7. GAVISCON [Concomitant]
     Route: 065
  8. PARACETAMOL [Concomitant]
     Route: 065

REACTIONS (5)
  - FATIGUE [None]
  - FEELING ABNORMAL [None]
  - MALAISE [None]
  - MYALGIA [None]
  - WITHDRAWAL SYNDROME [None]
